FAERS Safety Report 20034548 (Version 2)
Quarter: 2022Q3

REPORT INFORMATION
  Report Type: Spontaneous
  Country: CH (occurrence: CH)
  Receive Date: 20211104
  Receipt Date: 20220822
  Transmission Date: 20221026
  Serious: Yes (Life-Threatening, Hospitalization, Other)
  Sender: FDA-Public Use
  Company Number: None

PATIENT
  Age: 58 Year
  Sex: Male

DRUGS (10)
  1. CISPLATIN [Suspect]
     Active Substance: CISPLATIN
     Indication: Testicular germ cell tumour mixed
     Dosage: FREQUENCY TIME : 1 DAY, UNIT DOSE : 20MG/M2
     Route: 042
     Dates: start: 20210817, end: 20210817
  2. CISPLATIN [Suspect]
     Active Substance: CISPLATIN
     Dosage: 20 DOSE MG/M2
     Route: 065
     Dates: end: 20210925
  3. CISPLATIN [Suspect]
     Active Substance: CISPLATIN
     Route: 042
     Dates: start: 20210817, end: 20210821
  4. CISPLATIN [Suspect]
     Active Substance: CISPLATIN
     Dosage: 20 MG/M2, 1 DAY
     Dates: start: 20210925, end: 20210929
  5. BLEOMYCIN [Suspect]
     Active Substance: BLEOMYCIN SULFATE
     Indication: Testicular germ cell tumour mixed
     Route: 042
     Dates: start: 20210817, end: 20210817
  6. ETOPOSIDE [Suspect]
     Active Substance: ETOPOSIDE
     Indication: Testicular germ cell tumour mixed
     Route: 042
     Dates: start: 20210817, end: 20210821
  7. ETOPOPHOS [Suspect]
     Active Substance: ETOPOSIDE PHOSPHATE
     Indication: Testicular germ cell tumour mixed
     Dosage: 100 MG/M2, 1 DAY
     Route: 042
     Dates: start: 20210925, end: 20210929
  8. PREGABALIN [Concomitant]
     Active Substance: PREGABALIN
     Indication: Product used for unknown indication
  9. METOCLOPRAMIDE [Concomitant]
     Active Substance: METOCLOPRAMIDE
     Indication: Product used for unknown indication
     Dosage: AS NECESSARY
  10. ONDANSETRON [Concomitant]
     Active Substance: ONDANSETRON
     Indication: Product used for unknown indication
     Dosage: AS NECESSARY

REACTIONS (8)
  - Agranulocytosis [Recovered/Resolved]
  - Septic shock [Recovered/Resolved]
  - Neutropenic colitis [Recovered/Resolved]
  - Proctitis bacterial [Recovered/Resolved]
  - Thrombocytopenia [Recovered/Resolved]
  - Anaemia [Recovered/Resolved]
  - Thrombocytopenia [Recovered/Resolved]
  - Agranulocytosis [Recovered/Resolved]

NARRATIVE: CASE EVENT DATE: 20210801
